FAERS Safety Report 12938240 (Version 4)
Quarter: 2022Q2

REPORT INFORMATION
  Report Type: Spontaneous
  Country: US (occurrence: US)
  Receive Date: 20161114
  Receipt Date: 20220520
  Transmission Date: 20220720
  Serious: No
  Sender: FDA-Public Use
  Company Number: US-ACADIA PHARMACEUTICALS INC.-ACA-2016-000988

PATIENT
  Age: 84 Year
  Sex: Male

DRUGS (5)
  1. NUPLAZID [Suspect]
     Active Substance: PIMAVANSERIN TARTRATE
     Indication: Parkinson^s disease psychosis
     Dosage: 10 MILLIGRAM, QD
     Route: 065
     Dates: start: 20220201, end: 20220413
  2. NUPLAZID [Suspect]
     Active Substance: PIMAVANSERIN TARTRATE
     Indication: Hallucination
  3. NUPLAZID [Suspect]
     Active Substance: PIMAVANSERIN TARTRATE
     Indication: Delusion
  4. NUPLAZID [Suspect]
     Active Substance: PIMAVANSERIN TARTRATE
     Indication: Parkinson^s disease psychosis
     Dosage: 34 MG, QD
     Route: 048
     Dates: start: 201610
  5. SINEMET [Concomitant]
     Active Substance: CARBIDOPA\LEVODOPA

REACTIONS (5)
  - Loss of personal independence in daily activities [Unknown]
  - Depression [Unknown]
  - Bladder disorder [Not Recovered/Not Resolved]
  - Drug ineffective [Unknown]
  - Hallucination [Recovered/Resolved]

NARRATIVE: CASE EVENT DATE: 20161101
